FAERS Safety Report 23519312 (Version 2)
Quarter: 2024Q1

REPORT INFORMATION
  Report Type: Spontaneous
  Country: US (occurrence: US)
  Receive Date: 20240213
  Receipt Date: 20240314
  Transmission Date: 20240410
  Serious: No
  Sender: FDA-Public Use
  Company Number: US-SA-SAC20240207000188

PATIENT
  Age: 65 Year
  Sex: Female

DRUGS (1)
  1. DUPIXENT [Suspect]
     Active Substance: DUPILUMAB
     Dosage: UNK
     Route: 058
     Dates: start: 2023

REACTIONS (4)
  - Dyspnoea [Unknown]
  - Inadvertent injection air bubble [Unknown]
  - Product quality issue [Unknown]
  - Device defective [Unknown]

NARRATIVE: CASE EVENT DATE: 20240125
